FAERS Safety Report 8110709-4 (Version None)
Quarter: 2012Q1

REPORT INFORMATION
  Report Type: 
  Country: None (occurrence: None)
  Receive Date: 20120203
  Receipt Date: 20120126
  Transmission Date: 20120608
  Serious: Yes (Hospitalization)
  Sender: FDA-Public Use
  Company Number: IE-JNJFOC-20111008918

PATIENT
  Sex: Male

DRUGS (3)
  1. METHOTREXATE [Concomitant]
  2. SIMPONI [Suspect]
     Indication: SERONEGATIVE ARTHRITIS
     Route: 058
     Dates: start: 20110126
  3. FOLIC ACID [Concomitant]

REACTIONS (4)
  - INFLUENZA LIKE ILLNESS [None]
  - SPEECH DISORDER [None]
  - HYPOAESTHESIA ORAL [None]
  - EATING DISORDER [None]
